FAERS Safety Report 7005939-9 (Version None)
Quarter: 2010Q3

REPORT INFORMATION
  Report Type: 
  Country: None (occurrence: None)
  Receive Date: 20100921
  Receipt Date: 20100908
  Transmission Date: 20110219
  Serious: Yes (Hospitalization, Other)
  Sender: FDA-Public Use
  Company Number: US-ELI_LILLY_AND_COMPANY-US201009003321

PATIENT
  Age: 55 Year
  Sex: Female

DRUGS (7)
  1. CYMBALTA [Suspect]
     Indication: DEPRESSION
     Dosage: 30 MG, 2/D
  2. CYMBALTA [Suspect]
     Dosage: 90 MG, DAILY (1/D)
  3. CELEBREX [Concomitant]
  4. AVARA [Concomitant]
  5. XANAX [Concomitant]
     Dosage: 1 MG, 3/D
  6. DALMANE [Concomitant]
     Indication: SLEEP DISORDER
  7. LORA TAB [Concomitant]
     Indication: ABDOMINAL PAIN UPPER

REACTIONS (12)
  - ARTHRITIS [None]
  - BLINDNESS [None]
  - DEPRESSION [None]
  - DRUG INEFFECTIVE [None]
  - GLAUCOMA [None]
  - HYPOGLYCAEMIA [None]
  - INTRAOCULAR PRESSURE INCREASED [None]
  - MORBID THOUGHTS [None]
  - NERVOUSNESS [None]
  - OVARIAN CANCER METASTATIC [None]
  - PAIN [None]
  - PHOTOPSIA [None]
